FAERS Safety Report 5081544-9 (Version None)
Quarter: 2006Q3

REPORT INFORMATION
  Report Type: 
  Country: None (occurrence: None)
  Receive Date: 20060811
  Receipt Date: 20060728
  Transmission Date: 20061208
  Serious: Yes (Other)
  Sender: FDA-Public Use
  Company Number: 2006S1006103

PATIENT
  Age: 55 Year
  Sex: Female

DRUGS (8)
  1. ESTRADIOL [Suspect]
     Indication: MENOPAUSE
     Dosage: 0.05 MG/DAY;QW;TDER
     Route: 062
     Dates: start: 20060524
  2. AMLODIPINE [Concomitant]
  3. ISOSORBIDE MONONITRATE [Concomitant]
  4. ATORVASTATIN CALCIUM [Concomitant]
  5. LEVOTHYROXINE SODIUM [Concomitant]
  6. ACETYLSALICYLIC ACID SRT [Concomitant]
  7. POTASSIUM CHLORIDE [Concomitant]
  8. LANSOPRAZOLE [Concomitant]

REACTIONS (5)
  - BLOOD PRESSURE INCREASED [None]
  - CONDITION AGGRAVATED [None]
  - MENOPAUSAL SYMPTOMS [None]
  - PALPITATIONS [None]
  - PHARMACEUTICAL PRODUCT COMPLAINT [None]
